FAERS Safety Report 19098682 (Version 2)
Quarter: 2021Q2

REPORT INFORMATION
  Report Type: Report from Study
  Country: IN (occurrence: IN)
  Receive Date: 20210406
  Receipt Date: 20210413
  Transmission Date: 20210717
  Serious: Yes (Death)
  Sender: FDA-Public Use
  Company Number: IN-PFIZER INC-2021356590

PATIENT
  Age: 71 Year
  Sex: Female
  Weight: 55 kg

DRUGS (11)
  1. DEXAMETHASONE SODIUM PHOSPHATE. [Concomitant]
     Active Substance: DEXAMETHASONE SODIUM PHOSPHATE
     Indication: ASTHMA
     Dosage: 6 MG, 3X/DAY
     Route: 042
     Dates: start: 20210323, end: 20210325
  2. LEVIPIL [Concomitant]
     Active Substance: LEVETIRACETAM
     Indication: SEIZURE
     Dosage: 500 MG, 2X/DAY
     Route: 048
     Dates: start: 20210323, end: 20210325
  3. ACTRAPID [Concomitant]
     Active Substance: INSULIN HUMAN
     Indication: HYPOGLYCAEMIA
     Dosage: WITH INJ DEXTROSE 25%
     Route: 042
     Dates: start: 20210323, end: 20210325
  4. FORACORT [Concomitant]
     Active Substance: BUDESONIDE\FORMOTEROL FUMARATE
     Indication: ASTHMA
     Dosage: UNK, 1X/DAY 6MCG+400 MCG
     Route: 048
     Dates: start: 1989, end: 20210325
  5. MAGNA [Concomitant]
     Indication: LOWER RESPIRATORY TRACT INFECTION
     Dosage: 1.5 MG, 2X/DAY
     Route: 042
     Dates: start: 20210323, end: 20210325
  6. AZITHRAL [Concomitant]
     Indication: PNEUMONIA
     Dosage: 500 MG, 1X/DAY
     Route: 048
     Dates: start: 20210323, end: 20210325
  7. ASTHALIN [Concomitant]
     Indication: ASTHMA
     Dosage: 0.1 MG, 4X/DAY
     Route: 045
     Dates: start: 20210323, end: 20210325
  8. LORLATINIB [Suspect]
     Active Substance: LORLATINIB
     Indication: NON-SMALL CELL LUNG CANCER
     Dosage: 100 MG, 1X/DAY
     Route: 048
     Dates: start: 20210106, end: 20210325
  9. CORDARONE [Concomitant]
     Active Substance: AMIODARONE HYDROCHLORIDE
     Indication: TACHYCARDIA
     Dosage: 200 MG, 1X/DAY
     Route: 048
     Dates: start: 20210302, end: 20210325
  10. BUDECORT [Concomitant]
     Active Substance: BUDESONIDE
     Indication: ASTHMA
     Dosage: 0.1 MG, 4X/DAY
     Route: 045
     Dates: start: 20210323, end: 20210325
  11. SMUTH L [Concomitant]
     Indication: CONSTIPATION
     Dosage: 15 ML
     Route: 048
     Dates: start: 20210323, end: 20210325

REACTIONS (1)
  - Death [Fatal]

NARRATIVE: CASE EVENT DATE: 20210323
